FAERS Safety Report 24736315 (Version 1)
Quarter: 2024Q4

REPORT INFORMATION
  Report Type: Report from Study
  Country: KR (occurrence: KR)
  Receive Date: 20241216
  Receipt Date: 20241216
  Transmission Date: 20250114
  Serious: Yes (Other)
  Sender: ABBVIE
  Company Number: KR-ABBVIE-6041584

PATIENT
  Age: 37 Year
  Sex: Female
  Weight: 52 kg

DRUGS (5)
  1. RINVOQ [Suspect]
     Active Substance: UPADACITINIB
     Indication: Rheumatoid arthritis
     Dosage: FORM STRENGTH: 1 TABLET?MODIFIED-RELEASE FILM-COATED TABLET
     Route: 048
     Dates: start: 20231129
  2. FOLIC ACID SINIL TAB 1mg [Concomitant]
     Indication: Calcium deficiency
     Route: 048
     Dates: start: 20220112
  3. K-CAB TAB 50mg [Concomitant]
     Indication: Gastrooesophageal reflux disease
     Route: 048
     Dates: start: 20220530, end: 20240220
  4. GANAKHAN TAB 50mg [Concomitant]
     Indication: Gastritis
     Route: 048
     Dates: start: 20230906, end: 20240220
  5. Methotrexate (Rheumatrex. Folex) [Concomitant]
     Indication: Rheumatoid arthritis

REACTIONS (1)
  - Sudden hearing loss [Recovered/Resolved]

NARRATIVE: CASE EVENT DATE: 20240503
